FAERS Safety Report 9539109 (Version 2)
Quarter: 2013Q3

REPORT INFORMATION
  Report Type: Report from Study
  Country: US (occurrence: US)
  Receive Date: 20130920
  Receipt Date: 20130920
  Transmission Date: 20140515
  Serious: Yes (Other)
  Sender: FDA-Public Use
  Company Number: US-ABBVIE-13P-163-1140546-00

PATIENT
  Age: 59 Year
  Sex: Female

DRUGS (16)
  1. HUMIRA [Suspect]
     Indication: CROHN^S DISEASE
     Dosage: ON TUESDAY
     Route: 058
     Dates: start: 20130702
  2. PREDNISONE [Suspect]
     Indication: PRODUCT USED FOR UNKNOWN INDICATION
     Dosage: 5 MG AM AND 5 MG EVENING
  3. PREDNISONE [Suspect]
     Dosage: FOR TWO WEEKS
     Route: 048
     Dates: start: 20130913
  4. GLUCOSAMINE CHONDROITIN [Concomitant]
     Indication: ARTHRITIS
     Dosage: 1500MG/1200MG; 2 PILLS EVERY DAY
     Dates: start: 2011
  5. MULTIVITAMIN [Concomitant]
     Indication: VITAMIN SUPPLEMENTATION
     Dates: start: 2011
  6. PENTASA [Concomitant]
     Indication: CROHN^S DISEASE
  7. VITAMIN D [Concomitant]
     Indication: BONE DISORDER
     Dates: start: 2011
  8. TRAMADOL [Concomitant]
     Indication: PAIN
     Dosage: AS NEEDED
     Dates: start: 201301
  9. ONDANSETRON [Concomitant]
     Indication: NAUSEA
     Dates: start: 201301
  10. PROAIR [Concomitant]
     Indication: ASTHMA
     Dates: start: 2011
  11. NASONEX [Concomitant]
     Indication: HYPERSENSITIVITY
     Dosage: 2 SPRAY IN EACH NOSTRIL
     Dates: start: 2005
  12. CALCIUM + VITAMIN D [Concomitant]
     Indication: MINERAL SUPPLEMENTATION
     Dosage: EVERY EVENING
     Dates: start: 2005
  13. PREMARIN [Concomitant]
     Indication: HYSTERECTOMY
     Dosage: EVERY NIGHT
     Dates: start: 1991
  14. HYDROXYZINE HYDROCHLORIDE [Concomitant]
     Indication: URTICARIA
     Dosage: 1-2 TABS EVERY NIGHT
     Dates: start: 2003
  15. HYDROXYZINE HYDROCHLORIDE [Concomitant]
     Indication: HYPERSENSITIVITY
  16. SYMBICORT [Concomitant]
     Indication: ASTHMA
     Dosage: IN THE MORNING AND THE EVENING
     Dates: start: 20130821

REACTIONS (4)
  - Blindness unilateral [Recovering/Resolving]
  - Cataract [Recovering/Resolving]
  - Impaired driving ability [Unknown]
  - Fluid retention [Unknown]
